FAERS Safety Report 5895326-9 (Version None)
Quarter: 2008Q3

REPORT INFORMATION
  Report Type: 
  Country: None (occurrence: None)
  Receive Date: 20080924
  Receipt Date: 20080916
  Transmission Date: 20090109
  Serious: Yes (Hospitalization)
  Sender: FDA-Public Use
  Company Number: FR-ASTRAZENECA-2008CG01350

PATIENT
  Age: 84 Year
  Sex: Female

DRUGS (10)
  1. TENORMIN [Suspect]
     Indication: ATRIAL FIBRILLATION
     Route: 048
  2. DIAMICRON [Suspect]
     Indication: TYPE 2 DIABETES MELLITUS
     Route: 048
     Dates: end: 20080802
  3. ACTOS [Suspect]
     Indication: TYPE 2 DIABETES MELLITUS
     Route: 048
     Dates: end: 20080802
  4. COVERSYL [Suspect]
     Indication: HYPERTENSION
     Route: 048
  5. MOPRAL [Concomitant]
     Route: 065
  6. PREVISCAN [Concomitant]
  7. LASIX [Concomitant]
  8. IMOVANE [Concomitant]
  9. KALEORID [Concomitant]
  10. CIPROFLOXACIN HYDROCHLORIDE [Concomitant]

REACTIONS (8)
  - APATHY [None]
  - AREFLEXIA [None]
  - BLOOD CREATINE INCREASED [None]
  - BLOOD UREA INCREASED [None]
  - CONFUSIONAL STATE [None]
  - HYPOGLYCAEMIA [None]
  - PROTEUS INFECTION [None]
  - URINARY TRACT INFECTION [None]
